FAERS Safety Report 8016854-6 (Version None)
Quarter: 2012Q1

REPORT INFORMATION
  Report Type: 
  Country: None (occurrence: None)
  Receive Date: 20120102
  Receipt Date: 20111221
  Transmission Date: 20120608
  Serious: Yes (Hospitalization, Other)
  Sender: FDA-Public Use
  Company Number: PHHY2011JP106420

PATIENT
  Age: 84 Year
  Sex: Male
  Weight: 72 kg

DRUGS (9)
  1. ASPIRIN [Concomitant]
     Indication: MYOCARDIAL INFARCTION
     Dosage: 100 MG, UNK
     Route: 048
     Dates: start: 20070825
  2. ALLOPURINOL [Concomitant]
     Indication: HYPERURICAEMIA
     Dosage: 50 MG, UNK
     Route: 048
     Dates: start: 20101215
  3. BISOPROLOL [Concomitant]
     Indication: CARDIAC FAILURE
     Dosage: 2.5 MG, UNK
     Dates: start: 20101215
  4. PRAVASTATIN SODIUM [Concomitant]
     Indication: DYSLIPIDAEMIA
     Dosage: 10 MG, UNK
     Route: 048
     Dates: start: 20080611
  5. TICLOPIDINE HCL [Concomitant]
     Indication: MYOCARDIAL INFARCTION
     Dosage: 200 MG, UNK
     Dates: start: 20070823
  6. LOSARTAN POTASSIUM [Suspect]
     Indication: HYPERTENSION
     Dosage: 25 MG, UNK
     Route: 048
     Dates: start: 20101020, end: 20111108
  7. TORSEMIDE [Concomitant]
     Indication: CARDIAC FAILURE
     Dosage: 4 MG, UNK
     Route: 048
     Dates: start: 20101117, end: 20111011
  8. RASILEZ [Suspect]
     Indication: HYPERTENSION
     Dosage: 150 MG, DAILY
     Route: 048
     Dates: start: 20101215, end: 20110208
  9. ADALAT [Concomitant]
     Indication: HYPERTENSION
     Dosage: 30 MG, UNK
     Route: 048
     Dates: start: 20100922

REACTIONS (4)
  - BLOOD CREATININE INCREASED [None]
  - RENAL IMPAIRMENT [None]
  - HAEMOGLOBIN DECREASED [None]
  - BLOOD UREA INCREASED [None]
